FAERS Safety Report 5519757-1 (Version None)
Quarter: 2007Q4

REPORT INFORMATION
  Report Type: 
  Country: None (occurrence: None)
  Receive Date: 20071116
  Receipt Date: 20070807
  Transmission Date: 20080405
  Serious: No
  Sender: FDA-Public Use
  Company Number: A0668666A

PATIENT
  Age: 53 Year
  Sex: Female

DRUGS (5)
  1. COREG CR [Suspect]
     Indication: HYPERTENSION
     Dosage: 20MG PER DAY
     Route: 048
     Dates: start: 20070704
  2. AVANDIA [Concomitant]
  3. METFORMIN HCL [Concomitant]
  4. BENAZAPRIL [Concomitant]
  5. ASPIRIN [Concomitant]

REACTIONS (1)
  - HYPOTENSION [None]
